FAERS Safety Report 7461663-X (Version None)
Quarter: 2011Q2

REPORT INFORMATION
  Report Type: 
  Country: None (occurrence: None)
  Receive Date: 20110506
  Receipt Date: 20110425
  Transmission Date: 20111010
  Serious: Yes (Hospitalization, Other)
  Sender: FDA-Public Use
  Company Number: US-ELI_LILLY_AND_COMPANY-US201104007272

PATIENT
  Age: 73 Year
  Sex: Female

DRUGS (4)
  1. ZYPREXA [Suspect]
     Dosage: 5 MG, QD
  2. ATIVAN [Concomitant]
  3. PLAVIX [Concomitant]
  4. ZYPREXA [Suspect]
     Indication: ANXIETY
     Dosage: 2.5 MG, BID
     Route: 065

REACTIONS (5)
  - CONFUSIONAL STATE [None]
  - OFF LABEL USE [None]
  - VAGINAL HAEMORRHAGE [None]
  - GLYCOSURIA [None]
  - BLOOD GLUCOSE INCREASED [None]
